FAERS Safety Report 6602057-6 (Version None)
Quarter: 2010Q1

REPORT INFORMATION
  Report Type: 
  Country: None (occurrence: None)
  Receive Date: 20100225
  Receipt Date: 20100211
  Transmission Date: 20100710
  Serious: Yes (Other)
  Sender: FDA-Public Use
  Company Number: PHEH2009US00478

PATIENT
  Sex: Female

DRUGS (13)
  1. ZELNORM [Suspect]
  2. LEXAPRO [Concomitant]
  3. PLAVIX [Concomitant]
  4. AVALIDE [Concomitant]
  5. PRILOSEC [Concomitant]
  6. ASPIRIN [Concomitant]
  7. VYTORIN [Concomitant]
  8. AVAPRO [Concomitant]
  9. HYDROCHLOROTHIAZIDE [Concomitant]
  10. ZETIA [Concomitant]
  11. ZOCOR [Concomitant]
  12. TYLENOL-500 [Concomitant]
  13. MILK OF MAGNESIA TAB [Concomitant]

REACTIONS (11)
  - CEREBROVASCULAR ACCIDENT [None]
  - DEPRESSION [None]
  - DYSARTHRIA [None]
  - EMOTIONAL DISORDER [None]
  - FACIAL PALSY [None]
  - FACIAL PARESIS [None]
  - GASTRITIS [None]
  - HYPERLIPIDAEMIA [None]
  - HYPERTENSION [None]
  - INJURY [None]
  - OPHTHALMOPLEGIA [None]
